FAERS Safety Report 13747236 (Version 2)
Quarter: 2017Q3

REPORT INFORMATION
  Report Type: Spontaneous
  Country: US (occurrence: US)
  Receive Date: 20170712
  Receipt Date: 20170717
  Transmission Date: 20171127
  Serious: Yes (Death)
  Sender: FDA-Public Use
  Company Number: US-PFIZER INC-2136975

PATIENT
  Age: 45 Year
  Sex: Male

DRUGS (4)
  1. COCAINE [Suspect]
     Active Substance: COCAINE
     Dosage: UNK
  2. CODEINE [Suspect]
     Active Substance: CODEINE
     Dosage: UNK
     Route: 051
  3. HEROIN [Suspect]
     Active Substance: DIAMORPHINE
     Dosage: UNK
  4. DILTIAZEM HCL [Suspect]
     Active Substance: DILTIAZEM HYDROCHLORIDE
     Dosage: UNK
     Route: 051

REACTIONS (2)
  - Toxicity to various agents [Fatal]
  - Drug abuse [Fatal]
